FAERS Safety Report 9373143 (Version 1)
Quarter: 2013Q2

REPORT INFORMATION
  Report Type: Report from Study
  Country: CN (occurrence: CN)
  Receive Date: 20130627
  Receipt Date: 20130627
  Transmission Date: 20140414
  Serious: Yes (Death, Life-Threatening, Hospitalization, Other)
  Sender: FDA-Public Use
  Company Number: CN-PFIZER INC-2013187072

PATIENT
  Age: 43 Year
  Sex: Female

DRUGS (6)
  1. LINCOMYCIN HCL [Suspect]
     Dosage: UNK
  2. ASPIRIN [Suspect]
     Dosage: UNK
  3. AMIKACIN [Suspect]
     Dosage: UNK
  4. ZYVOX [Suspect]
     Dosage: UNK
  5. OFLOXACIN [Suspect]
     Dosage: UNK
  6. ROXITHROMYCIN [Suspect]
     Dosage: UNK

REACTIONS (1)
  - Toxic epidermal necrolysis [Fatal]
